FAERS Safety Report 8759975 (Version 2)
Quarter: 2012Q4

REPORT INFORMATION
  Report Type: 
  Country: US (occurrence: US)
  Receive Date: 20120829
  Receipt Date: 20120829
  Transmission Date: 20130627
  Serious: Yes (Hospitalization, Other)
  Sender: FDA-Public Use
  Company Number: US-009507513-0709USA04356

PATIENT

DRUGS (4)
  1. FOSAMAX [Suspect]
     Indication: OSTEOPOROSIS
     Dosage: 10 mg, qd
     Route: 048
     Dates: start: 19960318
  2. FOSAMAX [Suspect]
     Dosage: 70 mg, QW
     Route: 048
     Dates: start: 20031114, end: 20060206
  3. AMBIEN [Concomitant]
     Indication: INSOMNIA
     Dates: start: 19941121, end: 200305
  4. HORMONES (UNSPECIFIED) [Concomitant]
     Dates: start: 199506

REACTIONS (39)
  - Osteonecrosis of jaw [Unknown]
  - Osteomyelitis [Unknown]
  - Road traffic accident [Unknown]
  - Head injury [Unknown]
  - Neck injury [Unknown]
  - Affect lability [Unknown]
  - Psychotic behaviour [Unknown]
  - Blindness transient [Unknown]
  - Headache [Unknown]
  - Back pain [Unknown]
  - Abdominal pain [Unknown]
  - Dyspnoea exertional [Unknown]
  - Sinusitis [Unknown]
  - Temporal arteritis [Unknown]
  - Vertigo [Unknown]
  - Barrett^s oesophagus [Unknown]
  - Hiatus hernia [Unknown]
  - Hypoacusis [Not Recovered/Not Resolved]
  - Nausea [Unknown]
  - Pruritus [Unknown]
  - Fall [Unknown]
  - Otitis media chronic [Unknown]
  - Tympanic membrane perforation [Unknown]
  - Sinusitis [Unknown]
  - Deafness bilateral [Unknown]
  - Mastoiditis [Unknown]
  - Deafness [Unknown]
  - Bone erosion [Unknown]
  - Gastrooesophageal reflux disease [Unknown]
  - Loss of consciousness [Unknown]
  - Blood glucose increased [Unknown]
  - Helicobacter test positive [Unknown]
  - Pain in extremity [Unknown]
  - Arthralgia [Unknown]
  - Carotid artery stenosis [Unknown]
  - Actinomycosis [Unknown]
  - Ear disorder [Unknown]
  - Otorrhoea [Recovered/Resolved]
  - Device malfunction [Unknown]
